FAERS Safety Report 18898838 (Version 1)
Quarter: 2021Q1

REPORT INFORMATION
  Report Type: Spontaneous
  Country: US (occurrence: US)
  Receive Date: 20210212
  Receipt Date: 20210212
  Transmission Date: 20210420
  Serious: No
  Sender: FDA-Public Use
  Company Number: None

PATIENT
  Age: 63 Year
  Sex: Male
  Weight: 85.05 kg

DRUGS (1)
  1. MEDICAL GRADE MANUKA HONEY ALLERCLEANSE [Suspect]
     Active Substance: HERBALS\HONEY
     Indication: SINUS DISORDER
     Dosage: ?          OTHER STRENGTH:140;?
     Route: 055
     Dates: start: 20210131, end: 20210208

REACTIONS (1)
  - Condition aggravated [None]

NARRATIVE: CASE EVENT DATE: 20210205
